FAERS Safety Report 20788045 (Version 2)
Quarter: 2022Q3

REPORT INFORMATION
  Report Type: Spontaneous
  Country: JP (occurrence: JP)
  Receive Date: 20220505
  Receipt Date: 20220705
  Transmission Date: 20221026
  Serious: Yes (Hospitalization, Other)
  Sender: FDA-Public Use
  Company Number: JP-ASTELLAS-2022JP004841

PATIENT
  Age: 2 Decade
  Sex: Female
  Weight: 40 kg

DRUGS (14)
  1. PROGRAF [Suspect]
     Active Substance: TACROLIMUS
     Indication: Prophylaxis against graft versus host disease
     Dosage: UNK UNK, INCREASED BY INCREMENTS OF 0.1MG EVERY DAY
     Route: 041
     Dates: start: 202203, end: 202203
  2. PROGRAF [Suspect]
     Active Substance: TACROLIMUS
     Dosage: 0.4MG, GIVEN AT 0.4 MG/48ML, 2 ML PER HOUR
     Route: 041
     Dates: start: 20220322, end: 20220322
  3. PROGRAF [Suspect]
     Active Substance: TACROLIMUS
     Dosage: 0.5MG, GIVEN AT 0.5 MG/48ML, 2 ML PER HOUR
     Route: 041
     Dates: start: 20220323, end: 20220323
  4. PROGRAF [Suspect]
     Active Substance: TACROLIMUS
     Dosage: 0.6MG, GIVEN AT 0.6 MG/48ML, 2 ML PER HOUR
     Route: 041
     Dates: start: 20220324
  5. PROGRAF [Suspect]
     Active Substance: TACROLIMUS
     Dosage: 1 MG/DAY, UNKNOWN FREQ.
     Route: 041
     Dates: start: 20220325, end: 20220327
  6. PROGRAF [Suspect]
     Active Substance: TACROLIMUS
     Dosage: 1.2 MG/DAY, UNKNOWN FREQ.
     Route: 041
     Dates: start: 20220328, end: 20220328
  7. PROGRAF [Suspect]
     Active Substance: TACROLIMUS
     Dosage: 1.4 MG/DAY, UNKNOWN FREQ.
     Route: 041
     Dates: start: 20220329, end: 20220330
  8. PROGRAF [Suspect]
     Active Substance: TACROLIMUS
     Dosage: 1.6 MG/DAY, UNKNOWN FREQ.
     Route: 041
     Dates: start: 20220331
  9. MICAFUNGIN SODIUM [Concomitant]
     Active Substance: MICAFUNGIN SODIUM
     Indication: Product used for unknown indication
     Route: 041
  10. VALACYCLOVIR HYDROCHLORIDE [Concomitant]
     Active Substance: VALACYCLOVIR HYDROCHLORIDE
     Indication: Infection prophylaxis
     Dosage: UNK UNK, UNKNOWN FREQ.
     Route: 048
  11. ICOSAPENT ETHYL [Concomitant]
     Active Substance: ICOSAPENT ETHYL
     Indication: Product used for unknown indication
     Dosage: UNK UNK, UNKNOWN FREQ.
     Route: 048
  12. MIYA-BM [Concomitant]
     Active Substance: CLOSTRIDIUM BUTYRICUM SPORES STRAIN M-55
     Indication: Product used for unknown indication
     Dosage: UNK UNK, UNKNOWN FREQ.
     Route: 048
  13. MEROPENEM [Concomitant]
     Active Substance: MEROPENEM
     Indication: Pyrexia
     Dosage: UNK UNK, UNKNOWN FREQ.
     Route: 041
     Dates: start: 20220324, end: 20220325
  14. CELLCEPT [Concomitant]
     Active Substance: MYCOPHENOLATE MOFETIL
     Indication: Graft versus host disease in gastrointestinal tract
     Dosage: UNK UNK, UNKNOWN FREQ.
     Route: 065

REACTIONS (5)
  - Pyrexia [Recovered/Resolved]
  - Drug level decreased [Recovered/Resolved]
  - Graft versus host disease in gastrointestinal tract [Recovered/Resolved]
  - Graft versus host disease in skin [Recovered/Resolved]
  - Decubitus ulcer [Not Recovered/Not Resolved]

NARRATIVE: CASE EVENT DATE: 20220301
